FAERS Safety Report 4698509-9 (Version None)
Quarter: 2005Q2

REPORT INFORMATION
  Report Type: 
  Country: None (occurrence: None)
  Receive Date: 20050621
  Receipt Date: 20050602
  Transmission Date: 20051028
  Serious: Yes (Life-Threatening, Hospitalization)
  Sender: FDA-Public Use
  Company Number: EWC050644373

PATIENT
  Age: 11 Year
  Sex: Male

DRUGS (3)
  1. STRATTERA [Suspect]
     Indication: ATTENTION DEFICIT/HYPERACTIVITY DISORDER
     Dosage: 18 MG/2
     Dates: start: 20050325, end: 20050508
  2. MELATONIN [Concomitant]
  3. CONCERTA [Concomitant]

REACTIONS (3)
  - FEAR [None]
  - INJURY ASPHYXIATION [None]
  - SUICIDE ATTEMPT [None]
